FAERS Safety Report 5589485-5 (Version None)
Quarter: 2008Q1

REPORT INFORMATION
  Report Type: 
  Country: None (occurrence: None)
  Receive Date: 20080114
  Receipt Date: 20080109
  Transmission Date: 20080703
  Serious: Yes (Other)
  Sender: FDA-Public Use
  Company Number: CA-JNJFOC-20071100864

PATIENT
  Age: 4 Decade
  Sex: Female

DRUGS (1)
  1. REMICADE [Suspect]
     Indication: CROHN'S DISEASE
     Route: 042

REACTIONS (4)
  - DIARRHOEA [None]
  - MYALGIA [None]
  - TYPE IV HYPERSENSITIVITY REACTION [None]
  - VOMITING [None]
